FAERS Safety Report 11626252 (Version 2)
Quarter: 2015Q4

REPORT INFORMATION
  Report Type: Spontaneous
  Country: US (occurrence: US)
  Receive Date: 20151013
  Receipt Date: 20151023
  Transmission Date: 20160304
  Serious: Yes (Death, Hospitalization, Other)
  Sender: FDA-Public Use
  Company Number: US-APOTEX-2015AP013488

PATIENT
  Age: 63 Year
  Sex: Male

DRUGS (3)
  1. AMIODARONE HYDROCHLORIDE. [Suspect]
     Active Substance: AMIODARONE HYDROCHLORIDE
     Route: 065
  2. DEXAMETHASONE. [Suspect]
     Active Substance: DEXAMETHASONE
     Dosage: 0.75 MG, QD
     Route: 065
  3. DEXAMETHASONE. [Suspect]
     Active Substance: DEXAMETHASONE
     Indication: HYPERTHYROIDISM
     Dosage: 6 MG, PER DAY (STARTED 6 WEEKS PRIOR TO ADMISSION)
     Route: 065

REACTIONS (8)
  - Acute kidney injury [Unknown]
  - Septic shock [Unknown]
  - Metabolic acidosis [Unknown]
  - Cardio-respiratory arrest [Fatal]
  - Pneumocystis jirovecii pneumonia [Unknown]
  - Lactic acidosis [Unknown]
  - Respiratory acidosis [Unknown]
  - Hyperthyroidism [Unknown]
